FAERS Safety Report 17157374 (Version 1)
Quarter: 2019Q4

REPORT INFORMATION
  Report Type: Spontaneous
  Country: US (occurrence: US)
  Receive Date: 20191120
  Receipt Date: 20191120
  Transmission Date: 20200122
  Serious: Yes (Other)
  Sender: FDA-Public Use
  Company Number: None

PATIENT
  Age: 63 Year
  Sex: Female
  Weight: 92.53 kg

DRUGS (24)
  1. CASTIL LIQUID SOAP [Concomitant]
  2. ADVAIR HFA [Concomitant]
     Active Substance: FLUTICASONE PROPIONATE\SALMETEROL XINAFOATE
  3. ROCEPHIN [Suspect]
     Active Substance: CEFTRIAXONE SODIUM
     Indication: URINARY TRACT INFECTION
     Dosage: ?          QUANTITY:1 DF DOSAGE FORM;OTHER ROUTE:INJECTION PIC LINE?
     Dates: end: 20191004
  4. VALIUM [Concomitant]
     Active Substance: DIAZEPAM
  5. XANAX [Concomitant]
     Active Substance: ALPRAZOLAM
  6. SALINE NASAL SPRAY [Concomitant]
     Active Substance: SODIUM CHLORIDE
  7. DMSO [Concomitant]
     Active Substance: DIMETHYL SULFOXIDE
  8. POTASSIUM GLUCONATE [Concomitant]
     Active Substance: POTASSIUM GLUCONATE
  9. MAGNESIUM [Concomitant]
     Active Substance: MAGNESIUM
  10. BYETTA [Concomitant]
     Active Substance: EXENATIDE
  11. VITAMIN B12 [Concomitant]
     Active Substance: CYANOCOBALAMIN
  12. TYLENOL WITH CODEINE [Concomitant]
     Active Substance: ACETAMINOPHEN\CODEINE PHOSPHATE
  13. NSAIDS [Concomitant]
     Active Substance: UNSPECIFIED INGREDIENT
  14. SYNTHROID [Concomitant]
     Active Substance: LEVOTHYROXINE SODIUM
  15. LOVAZA [Concomitant]
     Active Substance: OMEGA-3-ACID ETHYL ESTERS
  16. VITAMIN E [Concomitant]
     Active Substance: .ALPHA.-TOCOPHEROL
  17. HALOBETASOL PROPIONATE. [Concomitant]
     Active Substance: HALOBETASOL PROPIONATE
  18. NAFTIN [Concomitant]
     Active Substance: NAFTIFINE HYDROCHLORIDE
  19. VITAMIN D3 [Concomitant]
     Active Substance: CHOLECALCIFEROL
  20. ROCEPHIN [Suspect]
     Active Substance: CEFTRIAXONE SODIUM
     Indication: SEPSIS
     Dosage: ?          QUANTITY:1 DF DOSAGE FORM;OTHER ROUTE:INJECTION PIC LINE?
     Dates: end: 20191004
  21. VOLTAREN [Concomitant]
     Active Substance: DICLOFENAC SODIUM
  22. LIDOCAIN [Concomitant]
     Active Substance: LIDOCAINE
  23. EUCERINE [Concomitant]
  24. SELENIUM [Concomitant]
     Active Substance: SELENIUM

REACTIONS (3)
  - Vomiting [None]
  - Dizziness [None]
  - Drug ineffective [None]

NARRATIVE: CASE EVENT DATE: 20191015
